FAERS Safety Report 25871102 (Version 1)
Quarter: 2025Q4

REPORT INFORMATION
  Report Type: Spontaneous
  Country: US (occurrence: None)
  Receive Date: 20251001
  Receipt Date: 20251001
  Transmission Date: 20260118
  Serious: Yes (Death, Life-Threatening, Hospitalization, Disabling, Congenital Anomaly, Other)
  Sender: FDA-CTU
  Company Number: None

PATIENT
  Age: 44 Year
  Sex: Female
  Weight: 70.49 kg

DRUGS (20)
  1. CAMPHOR\MENTHOL [Suspect]
     Active Substance: CAMPHOR\MENTHOL
     Indication: Affective disorder
     Dates: start: 20250903, end: 20250930
  2. CAMPHOR\MENTHOL [Suspect]
     Active Substance: CAMPHOR\MENTHOL
     Indication: Depression
  3. CAMPHOR\MENTHOL [Suspect]
     Active Substance: CAMPHOR\MENTHOL
     Indication: Schizophrenia
  4. CAMPHOR\MENTHOL [Suspect]
     Active Substance: CAMPHOR\MENTHOL
     Indication: Bipolar disorder
  5. CAMPHOR\MENTHOL [Suspect]
     Active Substance: CAMPHOR\MENTHOL
     Indication: Suicidal ideation
  6. CAMPHOR\MENTHOL [Suspect]
     Active Substance: CAMPHOR\MENTHOL
     Indication: Panic attack
  7. CAMPHOR\MENTHOL [Suspect]
     Active Substance: CAMPHOR\MENTHOL
     Indication: Insomnia
  8. CAMPHOR\MENTHOL [Suspect]
     Active Substance: CAMPHOR\MENTHOL
     Indication: Anger
  9. CAMPHOR\MENTHOL [Suspect]
     Active Substance: CAMPHOR\MENTHOL
     Indication: Anxiety
  10. QUETIAPINE [Suspect]
     Active Substance: QUETIAPINE
  11. HYDROCHLOROTHIAZIDE [Suspect]
     Active Substance: HYDROCHLOROTHIAZIDE
  12. LISINOPRIL [Suspect]
     Active Substance: LISINOPRIL
  13. Blemish control oil-free Clarifying Cleanser with Ceramides retinol + [Concomitant]
  14. Saline nasal spray 0.65% [Concomitant]
  15. Listerine cool mint antiseptic Vapor stick non-medicated [Concomitant]
  16. Crest Prohealth Sensitve and Gum [Concomitant]
  17. Olive oil max moisture super hydrating sulfate-free shampoo rice water [Concomitant]
  18. Adult Low Dose Aspirin Pain reliever (nsaid) 81 mg [Concomitant]
  19. heating pad [Concomitant]
  20. cortisone crean hydrocortisone [Concomitant]

REACTIONS (9)
  - Dry mouth [None]
  - Food craving [None]
  - Somnolence [None]
  - Bradykinesia [None]
  - Headache [None]
  - Alopecia [None]
  - Presyncope [None]
  - Weight increased [None]
  - Vision blurred [None]

NARRATIVE: CASE EVENT DATE: 20250922
